FAERS Safety Report 8817961 (Version 1)
Quarter: 2012Q4

REPORT INFORMATION
  Report Type: 
  Country: US (occurrence: US)
  Receive Date: 20121001
  Receipt Date: 20121001
  Transmission Date: 20130627
  Serious: No
  Sender: FDA-Public Use
  Company Number: US-ASTRAZENECA-2012SE70216

PATIENT
  Age: 61 Year
  Sex: Male

DRUGS (3)
  1. NEXIUM [Suspect]
     Route: 048
  2. OMEPRAZOLE [Suspect]
     Route: 048
  3. DEXILANT [Suspect]
     Route: 065

REACTIONS (3)
  - Gastric disorder [Unknown]
  - Adverse event [Unknown]
  - Drug effect incomplete [Unknown]
